FAERS Safety Report 13126827 (Version 1)
Quarter: 2017Q1

REPORT INFORMATION
  Report Type: Spontaneous
  Country: US (occurrence: US)
  Receive Date: 20170118
  Receipt Date: 20170118
  Transmission Date: 20170428
  Serious: Yes (Other)
  Sender: FDA-Public Use
  Company Number: US-ROCHE-1777705

PATIENT
  Sex: Male

DRUGS (1)
  1. RITUXAN [Suspect]
     Active Substance: RITUXIMAB
     Indication: PRODUCT USED FOR UNKNOWN INDICATION
     Dosage: 50 MG/HR (MIXING OF 700 MG DRUG IN NORMAL SALINE 700 ML SOLUTION)
     Route: 042

REACTIONS (2)
  - Dyspnoea [Unknown]
  - Wheezing [Unknown]
